FAERS Safety Report 12801430 (Version 1)
Quarter: 2016Q4

REPORT INFORMATION
  Report Type: Spontaneous
  Country: US (occurrence: US)
  Receive Date: 20161003
  Receipt Date: 20161003
  Transmission Date: 20170207
  Serious: No
  Sender: FDA-Public Use
  Company Number: US-JNJFOC-20160918588

PATIENT
  Age: 67 Year
  Sex: Female
  Weight: 47.63 kg

DRUGS (4)
  1. HUMIRA [Interacting]
     Active Substance: ADALIMUMAB
     Indication: CROHN^S DISEASE
     Dosage: START DATE: 2013 OR 2014  FREQUENCY: ONCE
     Route: 058
     Dates: end: 201605
  2. LEVAQUIN [Suspect]
     Active Substance: LEVOFLOXACIN
     Indication: UPPER RESPIRATORY TRACT INFECTION
     Route: 065
     Dates: start: 201512, end: 201512
  3. HUMIRA [Interacting]
     Active Substance: ADALIMUMAB
     Indication: CROHN^S DISEASE
     Dosage: START DATE: 2013 OR 2014STOP DATE: 2013 OR 2014 FREQUENCY ONCE
     Route: 058
  4. HUMIRA [Interacting]
     Active Substance: ADALIMUMAB
     Indication: CROHN^S DISEASE
     Dosage: START DATE: 2013 OR 2014 STOP DATE: 2013 OR 2014??FREQUENCY: ONCE
     Route: 058

REACTIONS (3)
  - Drug interaction [Recovered/Resolved]
  - Drug hypersensitivity [Unknown]
  - Erythema nodosum [Recovered/Resolved]

NARRATIVE: CASE EVENT DATE: 201512
